FAERS Safety Report 6304081-X (Version None)
Quarter: 2009Q3

REPORT INFORMATION
  Report Type: 
  Country: None (occurrence: None)
  Receive Date: 20090806
  Receipt Date: 20090730
  Transmission Date: 20100115
  Serious: Yes (Other)
  Sender: FDA-Public Use
  Company Number: 2009SP015916

PATIENT
  Age: 91 Year
  Sex: Male

DRUGS (1)
  1. TEMODAR [Suspect]
     Indication: MALIGNANT MELANOMA
     Dosage: 200 MG; QD
     Dates: start: 20090608, end: 20090612

REACTIONS (3)
  - HAEMORRHAGE [None]
  - NEOPLASM PROGRESSION [None]
  - SECRETION DISCHARGE [None]
